FAERS Safety Report 4451490-X (Version None)
Quarter: 2004Q3

REPORT INFORMATION
  Report Type: 
  Country: None (occurrence: None)
  Receive Date: 20040915
  Receipt Date: 20040902
  Transmission Date: 20050211
  Serious: No
  Sender: FDA-Public Use
  Company Number: A01200404208

PATIENT
  Age: 75 Year
  Sex: Male

DRUGS (1)
  1. ELOXATIN [Suspect]
     Dosage: 150 MG OTHER
     Route: 050
     Dates: start: 20040901, end: 20040901

REACTIONS (7)
  - BRADYCARDIA [None]
  - CHEST PAIN [None]
  - DROOLING [None]
  - HYPERHIDROSIS [None]
  - RADIAL PULSE ABNORMAL [None]
  - SYNCOPE [None]
  - TRANSIENT ISCHAEMIC ATTACK [None]
